FAERS Safety Report 8230690-7 (Version None)
Quarter: 2012Q1

REPORT INFORMATION
  Report Type: 
  Country: None (occurrence: None)
  Receive Date: 20120323
  Receipt Date: 20120319
  Transmission Date: 20120608
  Serious: Yes (Other)
  Sender: FDA-Public Use
  Company Number: BR-JNJFOC-20120301842

PATIENT
  Sex: Female
  Weight: 61 kg

DRUGS (1)
  1. LISTERINE COOLMINT [Suspect]
     Indication: DENTAL DISORDER PROPHYLAXIS
     Dosage: ONCE
     Route: 048
     Dates: start: 20120229, end: 20120229

REACTIONS (4)
  - APPLICATION SITE ERYTHEMA [None]
  - HYPOAESTHESIA ORAL [None]
  - ORAL DISCOMFORT [None]
  - THERMAL BURN [None]
